FAERS Safety Report 8218188-3 (Version None)
Quarter: 2012Q1

REPORT INFORMATION
  Report Type: 
  Country: None (occurrence: None)
  Receive Date: 20120319
  Receipt Date: 20120312
  Transmission Date: 20120608
  Serious: Yes (Hospitalization)
  Sender: FDA-Public Use
  Company Number: KR-SANOFI-AVENTIS-2012SA016484

PATIENT
  Age: 74 Year
  Sex: Female
  Weight: 44 kg

DRUGS (2)
  1. LANTUS [Suspect]
     Dosage: DOSE INCREASED
     Route: 058
  2. LANTUS [Suspect]
     Indication: DIABETES MELLITUS
     Dosage: DOSE:40 UNIT(S)
     Route: 058

REACTIONS (2)
  - VISION BLURRED [None]
  - HYPERGLYCAEMIA [None]
